FAERS Safety Report 7089911-9 (Version None)
Quarter: 2010Q4

REPORT INFORMATION
  Report Type: 
  Country: None (occurrence: None)
  Receive Date: 20101108
  Receipt Date: 20101025
  Transmission Date: 20110411
  Serious: Yes (Life-Threatening, Other)
  Sender: FDA-Public Use
  Company Number: US-AMGEN-QUU428683

PATIENT

DRUGS (3)
  1. NPLATE [Suspect]
     Indication: IDIOPATHIC THROMBOCYTOPENIC PURPURA
     Dosage: 375 A?G, UNK
     Dates: start: 20091012, end: 20100624
  2. NPLATE [Suspect]
     Dates: start: 20090519, end: 20100624
  3. ARANESP [Suspect]
     Indication: ANAEMIA

REACTIONS (8)
  - ACUTE MYELOID LEUKAEMIA [None]
  - BONE MARROW DISORDER [None]
  - HAEMATURIA [None]
  - HAEMORRHAGE URINARY TRACT [None]
  - MYELODYSPLASTIC SYNDROME [None]
  - MYOCARDIAL INFARCTION [None]
  - PANCYTOPENIA [None]
  - RENAL DISORDER [None]
